FAERS Safety Report 17284091 (Version 2)
Quarter: 2020Q1

REPORT INFORMATION
  Report Type: Spontaneous
  Country: CA (occurrence: CA)
  Receive Date: 20200117
  Receipt Date: 20200130
  Transmission Date: 20200409
  Serious: Yes (Hospitalization, Other)
  Sender: FDA-Public Use
  Company Number: CA-AMGEN-CANSP2020006151

PATIENT
  Age: 77 Year
  Sex: Male
  Weight: 77 kg

DRUGS (34)
  1. PROLIA [Suspect]
     Active Substance: DENOSUMAB
     Dosage: 60 MILLIGRAM, Q6MO
     Route: 058
     Dates: start: 20130517
  2. PROLIA [Suspect]
     Active Substance: DENOSUMAB
     Dosage: 60 MILLIGRAM, Q6MO
     Route: 058
     Dates: start: 20171113
  3. HYDROCORTISONE. [Concomitant]
     Active Substance: HYDROCORTISONE
  4. ATORVASTATIN [Concomitant]
     Active Substance: ATORVASTATIN
  5. PARIET [Concomitant]
     Active Substance: RABEPRAZOLE SODIUM
  6. BETASERC [Concomitant]
     Active Substance: BETAHISTINE
  7. RIVAROXABAN [Concomitant]
     Active Substance: RIVAROXABAN
  8. SERC [THIORIDAZINE] [Concomitant]
  9. DIAZEPAM. [Concomitant]
     Active Substance: DIAZEPAM
  10. ECTOSONE [Concomitant]
  11. PROLIA [Suspect]
     Active Substance: DENOSUMAB
     Dosage: 60 MILLIGRAM, Q6MO
     Route: 058
     Dates: start: 20190502
  12. PROLIA [Suspect]
     Active Substance: DENOSUMAB
     Dosage: 60 MILLIGRAM, Q6MO
     Route: 058
     Dates: start: 20191106
  13. RABEPRAZOLE [Concomitant]
     Active Substance: RABEPRAZOLE
  14. ELIQUIS [Concomitant]
     Active Substance: APIXABAN
  15. SYNTHROID [Concomitant]
     Active Substance: LEVOTHYROXINE SODIUM
  16. ZOPICLONE [Concomitant]
     Active Substance: ZOPICLONE
  17. XARELTO [Concomitant]
     Active Substance: RIVAROXABAN
  18. DESLORATADINE. [Concomitant]
     Active Substance: DESLORATADINE
  19. PROLIA [Suspect]
     Active Substance: DENOSUMAB
     Dosage: 60 MILLIGRAM, Q6MO
     Route: 058
     Dates: start: 20160517
  20. APIXABAN [Concomitant]
     Active Substance: APIXABAN
  21. LIPITOR [Concomitant]
     Active Substance: ATORVASTATIN CALCIUM
  22. SUBLINOX [Concomitant]
     Active Substance: ZOLPIDEM TARTRATE
  23. IMOVANE [Concomitant]
     Active Substance: ZOPICLONE
  24. PROLIA [Suspect]
     Active Substance: DENOSUMAB
     Dosage: 60 MILLIGRAM, Q6MO
     Route: 058
     Dates: start: 20141118
  25. PROLIA [Suspect]
     Active Substance: DENOSUMAB
     Dosage: 60 MILLIGRAM, Q6MO
     Route: 058
     Dates: start: 20150525
  26. PROLIA [Suspect]
     Active Substance: DENOSUMAB
     Dosage: 60 MILLIGRAM, Q6MO
     Route: 058
     Dates: start: 20170516
  27. METOCLOPRAMIDE. [Concomitant]
     Active Substance: METOCLOPRAMIDE
  28. PROLIA [Suspect]
     Active Substance: DENOSUMAB
     Indication: OSTEOPOROSIS
     Dosage: 60 MILLIGRAM, Q6MO
     Route: 058
     Dates: start: 20120518
  29. PROLIA [Suspect]
     Active Substance: DENOSUMAB
     Dosage: 60 MILLIGRAM, Q6MO
     Route: 058
     Dates: start: 20161116
  30. PROLIA [Suspect]
     Active Substance: DENOSUMAB
     Dosage: 60 MILLIGRAM, Q6MO
     Route: 058
     Dates: start: 20180516
  31. SUNITON [Concomitant]
     Active Substance: ACETAMINOPHEN\ORPHENADRINE CITRATE
  32. ELTROXIN [Concomitant]
     Active Substance: LEVOTHYROXINE
  33. AVAMYS [Concomitant]
     Active Substance: FLUTICASONE FUROATE
  34. FLOMAX [Concomitant]
     Active Substance: TAMSULOSIN HYDROCHLORIDE

REACTIONS (17)
  - Secondary hypothyroidism [Unknown]
  - IIIrd nerve paralysis [Recovering/Resolving]
  - Pituitary tumour benign [Recovered/Resolved]
  - Cystitis noninfective [Unknown]
  - Pituitary apoplexy [Recovered/Resolved]
  - Hypertension [Unknown]
  - Urinary tract obstruction [Unknown]
  - Tooth extraction [Unknown]
  - Cortisol decreased [Unknown]
  - Hypogonadism [Unknown]
  - Cholelithiasis [Unknown]
  - Ataxia [Unknown]
  - Acute kidney injury [Unknown]
  - Klebsiella infection [Unknown]
  - Prostatitis [Unknown]
  - Catheter site related reaction [Unknown]
  - Hepatic steatosis [Unknown]

NARRATIVE: CASE EVENT DATE: 201504
